FAERS Safety Report 13567774 (Version 1)
Quarter: 2017Q2

REPORT INFORMATION
  Report Type: Spontaneous
  Country: JP (occurrence: JP)
  Receive Date: 20170522
  Receipt Date: 20170522
  Transmission Date: 20170830
  Serious: Yes (Hospitalization, Other)
  Sender: FDA-Public Use
  Company Number: JP-GUERBET-JP-20160094

PATIENT
  Sex: Female

DRUGS (1)
  1. MAGNESCOPE INTRAVENOUS INJECTION 38% SYRINGE 11ML [Suspect]
     Active Substance: GADOTERATE MEGLUMINE
     Indication: NUCLEAR MAGNETIC RESONANCE IMAGING BREAST
     Route: 065
     Dates: start: 20160728, end: 20160728

REACTIONS (8)
  - Hypoaesthesia [Recovering/Resolving]
  - Wheezing [Unknown]
  - Feeling hot [Recovering/Resolving]
  - Dyspnoea [Recovering/Resolving]
  - Blood pressure decreased [Recovering/Resolving]
  - Chills [Recovering/Resolving]
  - Malaise [Recovering/Resolving]
  - Feeling abnormal [Unknown]

NARRATIVE: CASE EVENT DATE: 20160728
